FAERS Safety Report 21346912 (Version 1)
Quarter: 2022Q3

REPORT INFORMATION
  Report Type: Spontaneous
  Country: US (occurrence: None)
  Receive Date: 20220916
  Receipt Date: 20220916
  Transmission Date: 20221026
  Serious: Yes (Hospitalization)
  Sender: FDA-Public Use
  Company Number: None

PATIENT
  Age: 89 Year
  Sex: Male
  Weight: 68.49 kg

DRUGS (2)
  1. QUETIAPINE [Suspect]
     Active Substance: QUETIAPINE
     Indication: Anxiety
     Dosage: FREQUENCY : AS NEEDED;?
     Route: 048
     Dates: start: 20210513, end: 20220602
  2. QUETIAPINE [Suspect]
     Active Substance: QUETIAPINE
     Indication: Agitation

REACTIONS (7)
  - Lethargy [None]
  - Hyperhidrosis [None]
  - Pallor [None]
  - Gait disturbance [None]
  - Dizziness [None]
  - Sedation [None]
  - Hypotension [None]

NARRATIVE: CASE EVENT DATE: 20220602
